FAERS Safety Report 4781041-1 (Version None)
Quarter: 2005Q3

REPORT INFORMATION
  Report Type: 
  Country: None (occurrence: None)
  Receive Date: 20050926
  Receipt Date: 20050926
  Transmission Date: 20060218
  Serious: Yes (Life-Threatening, Hospitalization, Other)
  Sender: FDA-Public Use
  Company Number: None

PATIENT
  Age: 55 Year
  Sex: Male
  Weight: 137.5 kg

DRUGS (1)
  1. INDOMETHACIN [Suspect]
     Indication: BURSITIS
     Dosage: TID FOR PAIN/INFLAMMATI
     Dates: start: 20050615

REACTIONS (3)
  - EYE SWELLING [None]
  - PHARYNGEAL OEDEMA [None]
  - SWELLING FACE [None]
